FAERS Safety Report 5753687-5 (Version None)
Quarter: 2008Q2

REPORT INFORMATION
  Report Type: 
  Country: None (occurrence: None)
  Receive Date: 20080527
  Receipt Date: 20080514
  Transmission Date: 20081010
  Serious: No
  Sender: FDA-Public Use
  Company Number: 163-21880-06121015

PATIENT
  Age: 78 Year
  Sex: Female

DRUGS (7)
  1. REVLIMID [Suspect]
     Dosage: 5 - 25MG, X21 DAYS EVERY 28 DAYS, ORAL; EVERY OTHER DAY, ORAL
     Route: 048
     Dates: start: 20061023, end: 20070501
  2. REVLIMID [Suspect]
     Dosage: 5 - 25MG, X21 DAYS EVERY 28 DAYS, ORAL; EVERY OTHER DAY, ORAL
     Route: 048
     Dates: start: 20070529, end: 20071001
  3. REVLIMID [Suspect]
     Dosage: 5 - 25MG, X21 DAYS EVERY 28 DAYS, ORAL; EVERY OTHER DAY, ORAL
     Route: 048
     Dates: start: 20071025
  4. REVLIMID [Suspect]
  5. REVLIMID [Suspect]
  6. COUMADIN [Concomitant]
  7. SYSTANE OTC OCULAR LUBRICANT (RHINARIS) (OPHTHALMIC) [Concomitant]

REACTIONS (6)
  - ABDOMINAL PAIN UPPER [None]
  - ALOPECIA [None]
  - CATARACT [None]
  - HYPOAESTHESIA [None]
  - TREMOR [None]
  - VISION BLURRED [None]
